FAERS Safety Report 8578285-X (Version None)
Quarter: 2012Q3

REPORT INFORMATION
  Report Type: 
  Country: None (occurrence: None)
  Receive Date: 20120726
  Receipt Date: 20120711
  Transmission Date: 20120928
  Serious: Yes (Hospitalization)
  Sender: FDA-Public Use
  Company Number: TPA2012A04310

PATIENT
  Age: 59 Year
  Sex: Male
  Weight: 73.7 kg

DRUGS (14)
  1. NORVIR [Concomitant]
  2. ALBUTEROL/IPRATROPIUM (SALBUTAMOL, IPRATROPIUM) [Concomitant]
  3. LORATADINE [Concomitant]
  4. OXYCONTIN [Concomitant]
  5. PIOGLITAZONE [Concomitant]
  6. VARDENAFIL (VARDENAFIL) [Concomitant]
  7. FORMOTEROL FUMARATE [Concomitant]
  8. SELENIUM SULFIDE (SELENIUM SULFIDE) [Concomitant]
  9. TRUVADA (EMTRICITABINE) (TABLETS) [Concomitant]
  10. ALBUTEROL [Concomitant]
  11. IPRATROPIUN (IPRATROPIUM) (INHALANT) [Concomitant]
  12. DARUNAVIR HYDRATE [Concomitant]
  13. PIOGLITAZONE HYDROCHLORIDE [Suspect]
     Indication: DRUG THERAPY
     Dosage: 45 MG, DAILY, PER ORAL
     Route: 048
     Dates: start: 20110225, end: 20120528
  14. IBUPROFEN [Concomitant]

REACTIONS (1)
  - OSTEONECROSIS [None]
